FAERS Safety Report 11592446 (Version 14)
Quarter: 2017Q4

REPORT INFORMATION
  Report Type: Report from Study
  Country: CA (occurrence: CA)
  Receive Date: 20151005
  Receipt Date: 20171225
  Transmission Date: 20180320
  Serious: Yes (Hospitalization, Other)
  Sender: FDA-Public Use
  Company Number: CA-ROCHE-ITM201411IM007513

PATIENT
  Age: 68 Year
  Sex: Female

DRUGS (22)
  1. PLAQUENIL [Concomitant]
     Active Substance: HYDROXYCHLOROQUINE SULFATE
  2. ASA [Concomitant]
     Active Substance: ASPIRIN
  3. DOMPERIDONE [Concomitant]
     Active Substance: DOMPERIDONE
  4. ESBRIET [Suspect]
     Active Substance: PIRFENIDONE
     Route: 048
     Dates: start: 201501
  5. ESBRIET [Suspect]
     Active Substance: PIRFENIDONE
     Route: 048
     Dates: start: 201701
  6. ESBRIET [Suspect]
     Active Substance: PIRFENIDONE
     Route: 048
     Dates: start: 20140926
  7. ESBRIET [Suspect]
     Active Substance: PIRFENIDONE
     Route: 048
     Dates: start: 201410
  8. ESBRIET [Suspect]
     Active Substance: PIRFENIDONE
     Route: 048
     Dates: start: 201510, end: 201511
  9. AMLODIPINE [Concomitant]
     Active Substance: AMLODIPINE BESYLATE
  10. COVERSYL [Concomitant]
     Active Substance: PERINDOPRIL
  11. PREVACID [Concomitant]
     Active Substance: LANSOPRAZOLE
  12. ESBRIET [Suspect]
     Active Substance: PIRFENIDONE
     Indication: IDIOPATHIC PULMONARY FIBROSIS
     Route: 048
     Dates: start: 20140919
  13. ESBRIET [Suspect]
     Active Substance: PIRFENIDONE
     Route: 048
     Dates: start: 20141003
  14. ESBRIET [Suspect]
     Active Substance: PIRFENIDONE
     Route: 048
  15. CRESTOR [Concomitant]
     Active Substance: ROSUVASTATIN CALCIUM
  16. METOPROLOL. [Concomitant]
     Active Substance: METOPROLOL
  17. ESBRIET [Suspect]
     Active Substance: PIRFENIDONE
     Route: 048
  18. ESTRACE (CANADA) [Concomitant]
  19. LASIX [Concomitant]
     Active Substance: FUROSEMIDE
  20. METFORMIN [Concomitant]
     Active Substance: METFORMIN HYDROCHLORIDE
     Route: 065
  21. SULFASALAZINE. [Concomitant]
     Active Substance: SULFASALAZINE
  22. ELTROXIN [Concomitant]
     Active Substance: LEVOTHYROXINE

REACTIONS (18)
  - Interstitial lung disease [Unknown]
  - Hypotension [Unknown]
  - Dyspnoea [Unknown]
  - Bronchiectasis [Unknown]
  - Pulmonary function test abnormal [Unknown]
  - Nausea [Recovering/Resolving]
  - Vomiting [Not Recovered/Not Resolved]
  - Anaemia [Unknown]
  - Pleural thickening [Unknown]
  - Weight decreased [Unknown]
  - Ill-defined disorder [Unknown]
  - Dehydration [Unknown]
  - Fatigue [Not Recovered/Not Resolved]
  - Malaise [Not Recovered/Not Resolved]
  - Forced vital capacity decreased [Unknown]
  - Fatigue [Unknown]
  - Abdominal discomfort [Not Recovered/Not Resolved]
  - Rales [Unknown]

NARRATIVE: CASE EVENT DATE: 201410
